FAERS Safety Report 7683248-2 (Version None)
Quarter: 2011Q3

REPORT INFORMATION
  Report Type: 
  Country: None (occurrence: None)
  Receive Date: 20110815
  Receipt Date: 20110809
  Transmission Date: 20111222
  Serious: Yes (Other)
  Sender: FDA-Public Use
  Company Number: US-B.I. PHARMACEUTICALS,INC./RIDGEFIELD-2011-BP-19471BP

PATIENT
  Age: 77 Year
  Sex: Male
  Weight: 96.62 kg

DRUGS (2)
  1. ASPIRIN [Concomitant]
     Dosage: 81 MG
     Dates: start: 20020601
  2. PRADAXA [Suspect]
     Indication: ATRIAL FIBRILLATION
     Dosage: 300 MG
     Route: 048
     Dates: start: 20110601, end: 20110701

REACTIONS (5)
  - HAEMOGLOBIN DECREASED [None]
  - INTERNATIONAL NORMALISED RATIO ABNORMAL [None]
  - RECTAL HAEMORRHAGE [None]
  - DIARRHOEA [None]
  - FREQUENT BOWEL MOVEMENTS [None]
